FAERS Safety Report 17946092 (Version 2)
Quarter: 2020Q3

REPORT INFORMATION
  Report Type: Report from Study
  Country: CN (occurrence: CN)
  Receive Date: 20200626
  Receipt Date: 20200701
  Transmission Date: 20201103
  Serious: Yes (Other)
  Sender: FDA-Public Use
  Company Number: CN-BRISTOL-MYERS SQUIBB COMPANY-BMS-2020-048988

PATIENT
  Sex: Male

DRUGS (1)
  1. NIVOLUMAB [Suspect]
     Active Substance: NIVOLUMAB
     Indication: GASTRIC CANCER
     Dosage: 360 MILLIGRAM, Q3WK
     Route: 042
     Dates: start: 20200318

REACTIONS (4)
  - Off label use [Unknown]
  - Metastases to lymph nodes [Unknown]
  - Intestinal metastasis [Unknown]
  - Obstruction gastric [Recovering/Resolving]

NARRATIVE: CASE EVENT DATE: 2020
